FAERS Safety Report 6600409-1 (Version None)
Quarter: 2010Q1

REPORT INFORMATION
  Report Type: 
  Country: None (occurrence: None)
  Receive Date: 20100223
  Receipt Date: 20100223
  Transmission Date: 20100710
  Serious: No
  Sender: FDA-Public Use
  Company Number: None

PATIENT
  Sex: Female
  Weight: 76.2043 kg

DRUGS (2)
  1. FENTANYL [Suspect]
     Dosage: 50MCG/HR Q48 TD
     Route: 062
     Dates: start: 20090101
  2. FENTANYL [Suspect]

REACTIONS (3)
  - HEADACHE [None]
  - HYPERHIDROSIS [None]
  - INADEQUATE ANALGESIA [None]
